FAERS Safety Report 15427713 (Version 3)
Quarter: 2018Q4

REPORT INFORMATION
  Report Type: Spontaneous
  Country: JP (occurrence: JP)
  Receive Date: 20180925
  Receipt Date: 20181010
  Transmission Date: 20190204
  Serious: Yes (Hospitalization)
  Sender: FDA-Public Use
  Company Number: JP-GLAXOSMITHKLINE-JP2018JPN162090

PATIENT
  Age: 8 Decade
  Sex: Female

DRUGS (5)
  1. REQUIP [Suspect]
     Active Substance: ROPINIROLE HYDROCHLORIDE
     Dosage: 10 MG, 1D
     Route: 048
  2. LEVODOPA [Concomitant]
     Active Substance: LEVODOPA
     Dosage: UNK
  3. REQUIP [Suspect]
     Active Substance: ROPINIROLE HYDROCHLORIDE
     Dosage: 6 MG, 1D
     Route: 048
  4. BI SIFROL [Concomitant]
     Active Substance: PRAMIPEXOLE
     Dosage: UNK
  5. REQUIP [Suspect]
     Active Substance: ROPINIROLE HYDROCHLORIDE
     Dosage: 8 MG, 1D
     Route: 048

REACTIONS (2)
  - Back pain [Recovering/Resolving]
  - Hallucination [Recovering/Resolving]
